FAERS Safety Report 11750311 (Version 2)
Quarter: 2015Q4

REPORT INFORMATION
  Report Type: Spontaneous
  Country: JP (occurrence: JP)
  Receive Date: 20151118
  Receipt Date: 20151207
  Transmission Date: 20160304
  Serious: No
  Sender: FDA-Public Use
  Company Number: JP-SA-2015SA177219

PATIENT
  Age: 54 Year
  Sex: Male

DRUGS (2)
  1. DELLEGRA [Suspect]
     Active Substance: FEXOFENADINE HYDROCHLORIDE\PSEUDOEPHEDRINE HYDROCHLORIDE
     Route: 048
     Dates: start: 20150316, end: 20151102
  2. SHOSEIRYUTO [Suspect]
     Active Substance: EPHEDRA SINICA STEM\HERBALS
     Route: 065
     Dates: start: 201304, end: 20151102

REACTIONS (1)
  - Dysuria [Unknown]

NARRATIVE: CASE EVENT DATE: 201510
